FAERS Safety Report 9476874 (Version 2)
Quarter: 2013Q3

REPORT INFORMATION
  Report Type: Report from Study
  Country: DE (occurrence: DE)
  Receive Date: 20130826
  Receipt Date: 20130826
  Transmission Date: 20140515
  Serious: Yes (Death)
  Sender: FDA-Public Use
  Company Number: DE-ABBOTT-13P-062-1077867-00

PATIENT
  Age: 81 Year
  Sex: Male

DRUGS (7)
  1. TRENANTONE [Suspect]
     Indication: PROSTATE CANCER
     Route: 058
     Dates: start: 20120806, end: 20130430
  2. SERUM LIPID REDUCING AGENTS [Concomitant]
     Indication: PRODUCT USED FOR UNKNOWN INDICATION
  3. FALITHROM [Concomitant]
     Indication: PRODUCT USED FOR UNKNOWN INDICATION
  4. METOPROLOL SUCCINATE [Concomitant]
     Indication: ESSENTIAL HYPERTENSION
  5. TAMSULOSIN HYDROCHLORIDE [Concomitant]
     Indication: BENIGN PROSTATIC HYPERPLASIA
     Route: 048
     Dates: start: 20031209
  6. TAMSULOSIN HYDROCHLORIDE [Concomitant]
     Indication: PROSTATE CANCER
  7. ALLOPURINOL [Concomitant]
     Indication: PURINE METABOLISM DISORDER
     Route: 048
     Dates: start: 20081125

REACTIONS (3)
  - Adenocarcinoma [Fatal]
  - Gamma-glutamyltransferase increased [Unknown]
  - Blood alkaline phosphatase increased [Unknown]
